FAERS Safety Report 22121068 (Version 3)
Quarter: 2023Q2

REPORT INFORMATION
  Report Type: Spontaneous
  Country: US (occurrence: US)
  Receive Date: 20230321
  Receipt Date: 20230511
  Transmission Date: 20230722
  Serious: Yes (Disabling, Other)
  Sender: FDA-Public Use
  Company Number: US-PFIZER INC-202300116879

PATIENT
  Age: 80 Year
  Sex: Female
  Weight: 68.04 kg

DRUGS (6)
  1. PREMARIN [Suspect]
     Active Substance: ESTROGENS, CONJUGATED
     Indication: Hysterectomy
     Dosage: 1.25 MG, 1X/DAY
     Route: 048
     Dates: start: 1980
  2. FOLIC ACID [Suspect]
     Active Substance: FOLIC ACID
     Dosage: UNK
  3. MAGNESIUM SULFATE [Suspect]
     Active Substance: MAGNESIUM SULFATE
     Dosage: UNK
  4. MINERALS\VITAMINS [Suspect]
     Active Substance: MINERALS\VITAMINS
     Dosage: UNK
  5. METAMIZOLE [Suspect]
     Active Substance: METAMIZOLE
     Dosage: UNK
  6. PRALUENT [Concomitant]
     Active Substance: ALIROCUMAB
     Indication: Type IIa hyperlipidaemia
     Dosage: 75MG INJECTION EVERY TWO WEEKS

REACTIONS (2)
  - COVID-19 [Not Recovered/Not Resolved]
  - Dental implantation [Recovering/Resolving]

NARRATIVE: CASE EVENT DATE: 20230201
